FAERS Safety Report 11279396 (Version 1)
Quarter: 2020Q3

REPORT INFORMATION
  Report Type: Report from Study
  Country: RS (occurrence: RS)
  Receive Date: 20150717
  Receipt Date: 20150717
  Transmission Date: 20201105
  Serious: Yes (Hospitalization)
  Sender: FDA-Public Use
  Company Number: RS-JNJFOC-20150214404

PATIENT
  Age: 21 Year
  Sex: Male
  Weight: 45 kg

DRUGS (9)
  1. CONTROLOC [Concomitant]
     Active Substance: PANTOPRAZOLE SODIUM
     Route: 048
     Dates: start: 20120710
  2. BIVALOS [Concomitant]
     Route: 048
     Dates: start: 20120710
  3. USTEKINUMAB [Suspect]
     Active Substance: USTEKINUMAB
     Route: 058
  4. IMURAN [Concomitant]
     Active Substance: AZATHIOPRINE
     Route: 048
     Dates: start: 20120710
  5. SALOFALK [MESALAZINE] [Concomitant]
     Active Substance: MESALAMINE
     Route: 048
     Dates: start: 20120710
  6. FOLAN [Concomitant]
     Active Substance: FOLIC ACID
     Route: 048
     Dates: start: 20120710
  7. USTEKINUMAB [Suspect]
     Active Substance: USTEKINUMAB
     Indication: CROHN^S DISEASE
     Route: 058
     Dates: start: 20130411
  8. VITAMIN D3 [Concomitant]
     Active Substance: CHOLECALCIFEROL
     Route: 048
     Dates: start: 20120710
  9. CALCIUM [Concomitant]
     Active Substance: CALCIUM
     Route: 048
     Dates: start: 20120710

REACTIONS (1)
  - Pseudomembranous colitis [Recovered/Resolved]

NARRATIVE: CASE EVENT DATE: 20150214
